FAERS Safety Report 8165171-2 (Version None)
Quarter: 2012Q1

REPORT INFORMATION
  Report Type: 
  Country: None (occurrence: None)
  Receive Date: 20120227
  Receipt Date: 20120223
  Transmission Date: 20120608
  Serious: Yes (Other)
  Sender: FDA-Public Use
  Company Number: US-PFIZER INC-2012048390

PATIENT

DRUGS (2)
  1. RAPAMUNE [Suspect]
     Dosage: UNK
  2. CYCLOSPORINE [Suspect]

REACTIONS (1)
  - MOUTH ULCERATION [None]
